FAERS Safety Report 4897925-X (Version None)
Quarter: 2006Q1

REPORT INFORMATION
  Report Type: 
  Country: None (occurrence: None)
  Receive Date: 20060130
  Receipt Date: 20060130
  Transmission Date: 20060701
  Serious: Yes (Hospitalization, Other)
  Sender: FDA-Public Use
  Company Number: None

PATIENT
  Sex: Male
  Weight: 60 kg

DRUGS (3)
  1. CARBOPLATIN [Suspect]
     Indication: NON-SMALL CELL LUNG CANCER
     Dosage: SEE IMAGE
     Dates: start: 20051018
  2. TAXOL [Suspect]
     Dosage: SEE IMAGE
     Dates: start: 20051018
  3. RADIATION [Suspect]
     Dosage: SEE IMAGE
     Dates: start: 20051018

REACTIONS (6)
  - ALCOHOL WITHDRAWAL SYNDROME [None]
  - ATELECTASIS [None]
  - BRONCHIAL OBSTRUCTION [None]
  - DELIRIUM TREMENS [None]
  - HAEMATOCRIT DECREASED [None]
  - POST PROCEDURAL COMPLICATION [None]
